FAERS Safety Report 12424312 (Version 1)
Quarter: 2016Q2

REPORT INFORMATION
  Report Type: Spontaneous
  Country: US (occurrence: US)
  Receive Date: 20160601
  Receipt Date: 20160601
  Transmission Date: 20160815
  Serious: No
  Sender: FDA-Public Use
  Company Number: US-NOVEN PHARMACEUTICALS, INC.-US2015001266

PATIENT

DRUGS (9)
  1. DEXTROAMPHETAMINE. [Concomitant]
     Active Substance: DEXTROAMPHETAMINE
  2. DAYTRANA [Suspect]
     Active Substance: METHYLPHENIDATE
     Indication: ATTENTION DEFICIT/HYPERACTIVITY DISORDER
     Dosage: 10 MG, USING MULTIPLE PATCHES TO MAKE A TOTAL DOSE OF 40 MG
     Route: 062
  3. AMANTADINE [Concomitant]
     Active Substance: AMANTADINE
  4. METHYLPHENIDATE. [Concomitant]
     Active Substance: METHYLPHENIDATE
  5. DAYTRANA [Suspect]
     Active Substance: METHYLPHENIDATE
     Dosage: 30 MG, USING MULTIPLE PATCHES TO MAKE A TOTAL DOSE OF 40 MG
     Route: 062
  6. DAYTRANA [Suspect]
     Active Substance: METHYLPHENIDATE
     Dosage: 20 MG, USING MULTIPLE PATCHES TO MAKE A TOTAL DOSE OF 40 MG
     Route: 062
  7. VAYARIN [Concomitant]
     Active Substance: DOCONEXENT\ICOSAPENT\PHOSPHATIDYL SERINE
  8. CITALOPRAM [Concomitant]
     Active Substance: CITALOPRAM HYDROBROMIDE
  9. DAYTRANA [Suspect]
     Active Substance: METHYLPHENIDATE
     Dosage: 40 MG (APPLIED EITHER TWO, 20MG PATCHES OR ANY DOSAGE TO MAKE 40MG TWICE IN A DAY), BID
     Route: 062

REACTIONS (6)
  - Drug effect decreased [Unknown]
  - Wrong technique in product usage process [Unknown]
  - Prescribed overdose [Unknown]
  - Product quality issue [Unknown]
  - Off label use [Unknown]
  - Product adhesion issue [Unknown]
